FAERS Safety Report 6400588-5 (Version None)
Quarter: 2009Q4

REPORT INFORMATION
  Report Type: 
  Country: None (occurrence: None)
  Receive Date: 20091014
  Receipt Date: 20091001
  Transmission Date: 20100525
  Serious: Yes (Hospitalization, Other)
  Sender: FDA-Public Use
  Company Number: PHEH2007US04432

PATIENT
  Sex: Female

DRUGS (10)
  1. AREDIA [Suspect]
     Indication: BONE NEOPLASM MALIGNANT
     Dosage: UNK
     Route: 042
     Dates: end: 20060101
  2. FEMARA [Concomitant]
     Dosage: 2.5MG
  3. ASPIRIN [Concomitant]
  4. NORVASC [Concomitant]
  5. TOPROL-XL [Concomitant]
  6. FLUOXETINE [Concomitant]
  7. LASIX [Concomitant]
  8. ARANESP [Concomitant]
  9. ALTACE [Concomitant]
  10. PREDNISONE TAB [Concomitant]
     Dosage: 10 MG, QD

REACTIONS (35)
  - ANAEMIA [None]
  - ANGIOEDEMA [None]
  - ANHEDONIA [None]
  - ANXIETY [None]
  - ARRHYTHMIA [None]
  - BONE DISORDER [None]
  - CARDIAC FAILURE CONGESTIVE [None]
  - CATARACT OPERATION [None]
  - CATHETER PLACEMENT [None]
  - DEFORMITY [None]
  - DEPRESSION [None]
  - DISCOMFORT [None]
  - DIVERTICULUM [None]
  - EMOTIONAL DISTRESS [None]
  - GASTROOESOPHAGEAL REFLUX DISEASE [None]
  - HYPERCHOLESTEROLAEMIA [None]
  - HYPERTENSION [None]
  - HYPOPHAGIA [None]
  - HYSTERECTOMY [None]
  - INJURY [None]
  - LIFE EXPECTANCY SHORTENED [None]
  - MITRAL VALVE PROLAPSE [None]
  - NEUROPATHY PERIPHERAL [None]
  - NODULE [None]
  - ORAL SURGERY [None]
  - OSTEOARTHRITIS [None]
  - OSTEONECROSIS [None]
  - PAIN [None]
  - PHYSICAL DISABILITY [None]
  - PURULENT DISCHARGE [None]
  - RENAL FAILURE [None]
  - SCOLIOSIS [None]
  - SMALL INTESTINAL OBSTRUCTION [None]
  - SWELLING [None]
  - TOOTH EXTRACTION [None]
